FAERS Safety Report 7951924-X (Version None)
Quarter: 2011Q4

REPORT INFORMATION
  Report Type: 
  Country: None (occurrence: None)
  Receive Date: 20111201
  Receipt Date: 20111122
  Transmission Date: 20120403
  Serious: Yes (Life-Threatening, Hospitalization)
  Sender: FDA-Public Use
  Company Number: NL-AMGEN-NLDSP2011061847

PATIENT
  Age: 73 Year
  Sex: Female

DRUGS (25)
  1. POLYETHYLENE GLYCOL [Concomitant]
     Dosage: UNK
     Route: 048
     Dates: start: 20111121
  2. CITALOPRAM [Concomitant]
     Dosage: 40 MG, QD
     Route: 048
     Dates: start: 20111121
  3. NOVOLOG MIX 70/30 [Concomitant]
     Dosage: UNK UNK, BID
     Route: 058
     Dates: start: 20111121
  4. DARBEPOETIN ALFA [Concomitant]
     Dosage: UNK
     Dates: start: 20111121
  5. ACETAMINOPHEN [Concomitant]
     Dosage: 500 MG, UNK
     Route: 048
     Dates: start: 20111121
  6. TEMAZEPAM [Concomitant]
     Dosage: 10 MG, QD
     Route: 048
     Dates: start: 20111121
  7. NOVORAPID [Concomitant]
     Dosage: 100 UNK, UNK
     Route: 058
     Dates: start: 20111121
  8. COLECALCIFEROL [Concomitant]
     Dosage: 50000 IU, UNK
     Route: 048
     Dates: start: 20111121
  9. DIGOXIN [Concomitant]
     Dosage: 0.062 MG, QD
     Route: 048
     Dates: start: 20111121
  10. FUROSEMIDE [Concomitant]
     Dosage: 500 MG, BID
     Route: 048
     Dates: start: 20111121
  11. METOPROLOL TARTRATE [Concomitant]
     Dosage: 100 MG, QD
     Route: 048
     Dates: start: 20111121
  12. SEVELAMER CARBONATE [Concomitant]
     Dosage: 2.4 G, UNK
     Dates: start: 20111121
  13. ALFACALCIDOL [Concomitant]
     Dosage: UNK
     Route: 048
     Dates: start: 20111121
  14. NADROPARIN                         /01437702/ [Concomitant]
     Dosage: UNK UNK, QD
     Route: 058
     Dates: start: 20111121
  15. LIDOCAINE W/PRILOCAINE [Concomitant]
     Dosage: 5 G, UNK
     Route: 061
     Dates: start: 20111121
  16. PREDNISOLONE [Concomitant]
     Dosage: 2.5 MG, QD
     Dates: start: 20111121
  17. OMEPRAZOLE [Concomitant]
     Dosage: 40 MG, QD
     Route: 048
     Dates: start: 20111121
  18. ACETYLSALICYLIC ACID SRT [Concomitant]
     Dosage: 80 MG, QD
     Route: 048
     Dates: start: 20111121
  19. PREDNISOLONE [Concomitant]
     Dosage: 5 MG, QD
     Route: 048
     Dates: start: 20111121
  20. LEFLUNOMIDE [Concomitant]
     Dosage: 10 MG, UNK
     Route: 048
     Dates: start: 20111121
  21. OXYCODONE HCL [Concomitant]
     Dosage: 5 MG, UNK
     Dates: start: 20111121
  22. PROLIA [Suspect]
     Indication: OSTEOPOROSIS
     Dosage: UNK
     Dates: start: 20111118
  23. MULTIVITAMINES AND MINERALS [Concomitant]
     Dosage: UNK UNK, QD
     Route: 048
     Dates: start: 20111121
  24. CALCIUM CARBONATE [Concomitant]
     Dosage: 1.25 G, UNK
     Route: 048
     Dates: start: 20111121
  25. ATORVASTATIN CALCIUM [Concomitant]
     Dosage: 40 MG, QD
     Route: 048
     Dates: start: 20111121

REACTIONS (4)
  - INFECTION [None]
  - PAIN [None]
  - HYPOCALCAEMIA [None]
  - MYOCARDIAL INFARCTION [None]
